FAERS Safety Report 5502182-7 (Version None)
Quarter: 2007Q4

REPORT INFORMATION
  Report Type: 
  Country: None (occurrence: None)
  Receive Date: 20071019
  Receipt Date: 20070105
  Transmission Date: 20080405
  Serious: Yes (Other)
  Sender: FDA-Public Use
  Company Number: PHEH2007US00612

PATIENT

DRUGS (1)
  1. ZOMETA [Suspect]

REACTIONS (1)
  - RASH [None]
